FAERS Safety Report 17344101 (Version 1)
Quarter: 2020Q1

REPORT INFORMATION
  Report Type: Spontaneous
  Country: SE (occurrence: SE)
  Receive Date: 20200129
  Receipt Date: 20200129
  Transmission Date: 20200409
  Serious: Yes (Hospitalization)
  Sender: FDA-Public Use
  Company Number: SE-MYLANLABS-2020M1010303

PATIENT
  Age: 14 Year
  Sex: Female

DRUGS (5)
  1. LERGIGAN (PROMETHAZINE HYDROCHLORIDE) [Suspect]
     Active Substance: PROMETHAZINE HYDROCHLORIDE
     Indication: PRODUCT USED FOR UNKNOWN INDICATION
     Dosage: ^3 ST^
     Route: 048
     Dates: start: 20190608, end: 20190608
  2. MELATONIN [Concomitant]
     Active Substance: MELATONIN
  3. CIRCADIN [Concomitant]
     Active Substance: MELATONIN
  4. ABILIFY [Concomitant]
     Active Substance: ARIPIPRAZOLE
  5. SERTRALINE [Concomitant]
     Active Substance: SERTRALINE HYDROCHLORIDE

REACTIONS (5)
  - Intentional self-injury [Unknown]
  - Pyrexia [Unknown]
  - Intentional overdose [Unknown]
  - Anxiety [Unknown]
  - Hallucination [Unknown]

NARRATIVE: CASE EVENT DATE: 20190608
